FAERS Safety Report 15630051 (Version 1)
Quarter: 2018Q4

REPORT INFORMATION
  Report Type: Spontaneous
  Country: US (occurrence: US)
  Receive Date: 20181118
  Receipt Date: 20181118
  Transmission Date: 20190205
  Serious: Yes (Hospitalization, Other)
  Sender: FDA-Public Use
  Company Number: US-AUROBINDO-AUR-APL-2018-052993

PATIENT
  Age: 20 Year
  Sex: Male
  Weight: 51.8 kg

DRUGS (5)
  1. LEVOFLOXACIN. [Suspect]
     Active Substance: LEVOFLOXACIN
     Indication: EPIDIDYMITIS
     Dosage: 500 MILLIGRAM, DAILY FOR 10 DAYS
     Route: 065
  2. INSULIN DETEMIR [Concomitant]
     Active Substance: INSULIN DETEMIR
     Indication: TYPE 1 DIABETES MELLITUS
     Dosage: 12 INTERNATIONAL UNIT, DAILY AT BEDTIME
     Route: 065
  3. INSULIN LISPRO [Concomitant]
     Active Substance: INSULIN LISPRO
     Dosage: 4 INTERNATIONAL UNIT BEFORE BREAKFAST
     Route: 065
  4. INSULIN LISPRO [Concomitant]
     Active Substance: INSULIN LISPRO
     Dosage: 11 INTERNATIONAL UNIT, DAILY BEFORE DINNER
     Route: 065
  5. INSULIN LISPRO [Concomitant]
     Active Substance: INSULIN LISPRO
     Indication: TYPE 1 DIABETES MELLITUS
     Dosage: 8 INTERNATIONAL UNIT, DAILY BEFORE LUNCH
     Route: 065

REACTIONS (9)
  - Burning sensation [Unknown]
  - Pain [Recovering/Resolving]
  - Neuropathy peripheral [Recovering/Resolving]
  - Abdominal pain lower [Unknown]
  - Peripheral coldness [Unknown]
  - Tendon pain [Unknown]
  - Muscle tightness [Unknown]
  - Back pain [Unknown]
  - Muscular weakness [Unknown]
